FAERS Safety Report 13077368 (Version 1)
Quarter: 2016Q4

REPORT INFORMATION
  Report Type: Spontaneous
  Country: US (occurrence: US)
  Receive Date: 20161230
  Receipt Date: 20161230
  Transmission Date: 20170207
  Serious: No
  Sender: FDA-Public Use
  Company Number: US-DRREDDYS-USA/USA/16/0084697

PATIENT
  Age: 54 Year
  Sex: Male

DRUGS (1)
  1. HABITROL [Suspect]
     Active Substance: NICOTINE
     Indication: SMOKING CESSATION THERAPY
     Route: 061
     Dates: start: 20161107

REACTIONS (4)
  - Treatment noncompliance [Unknown]
  - Overdose [Unknown]
  - Product adhesion issue [Unknown]
  - Wrong technique in product usage process [Unknown]
